FAERS Safety Report 6308460-6 (Version None)
Quarter: 2009Q3

REPORT INFORMATION
  Report Type: 
  Country: None (occurrence: None)
  Receive Date: 20090813
  Receipt Date: 20090804
  Transmission Date: 20100115
  Serious: Yes (Other)
  Sender: FDA-Public Use
  Company Number: PHHY2008GB24610

PATIENT
  Sex: Male

DRUGS (13)
  1. CLOZARIL [Suspect]
     Dosage: 125MG AM AND 175MG TEATIME
  2. CARBIMAZOLE [Suspect]
     Indication: HYPERTHYROIDISM
     Dosage: 30 MG
     Dates: start: 20081014, end: 20081209
  3. SALBUTAMOL [Concomitant]
  4. NULYTELY [Concomitant]
  5. ALENDRONATE SODIUM [Concomitant]
  6. OMEPRAZOLE [Concomitant]
  7. CITALOPRAM HYDROBROMIDE [Concomitant]
  8. FRUSEMIDE [Concomitant]
  9. KWELLS [Concomitant]
  10. ATORVASTATIN [Concomitant]
  11. SERETIDE [Concomitant]
  12. CALCIUM [Concomitant]
  13. FOLIC ACID [Concomitant]

REACTIONS (3)
  - HEADACHE [None]
  - HYPERTHYROIDISM [None]
  - ISCHAEMIA [None]
